FAERS Safety Report 17443666 (Version 2)
Quarter: 2020Q1

REPORT INFORMATION
  Report Type: Spontaneous
  Country: US (occurrence: US)
  Receive Date: 20200221
  Receipt Date: 20200311
  Transmission Date: 20200409
  Serious: No
  Sender: FDA-Public Use
  Company Number: NVSC2020US048478

PATIENT
  Age: 87 Year
  Sex: Male

DRUGS (3)
  1. VOLTAREN [Suspect]
     Active Substance: DICLOFENAC SODIUM
     Indication: ARTHRALGIA
     Dosage: UNK
     Route: 065
     Dates: start: 2000, end: 20200212
  2. VOLTAREN [Suspect]
     Active Substance: DICLOFENAC SODIUM
     Indication: BACK DISORDER
  3. VOLTAREN [Suspect]
     Active Substance: DICLOFENAC SODIUM
     Indication: PAIN IN EXTREMITY

REACTIONS (10)
  - Product use in unapproved indication [Unknown]
  - Product administered at inappropriate site [Unknown]
  - Application site inflammation [Unknown]
  - Application site erythema [Unknown]
  - Application site pain [Unknown]
  - Application site rash [Unknown]
  - Application site pruritus [Unknown]
  - Application site discharge [Unknown]
  - Off label use [Unknown]
  - Application site papules [Unknown]
